FAERS Safety Report 8434859-8 (Version None)
Quarter: 2012Q2

REPORT INFORMATION
  Report Type: 
  Country: None (occurrence: None)
  Receive Date: 20120614
  Receipt Date: 20120605
  Transmission Date: 20120825
  Serious: Yes (Hospitalization)
  Sender: FDA-Public Use
  Company Number: US-BAYER-2012-030797

PATIENT
  Age: 28 Year
  Sex: Female
  Weight: 84.807 kg

DRUGS (8)
  1. YAZ [Suspect]
     Indication: CONTRACEPTION
     Dosage: UNK
     Route: 048
     Dates: start: 20090101, end: 20100101
  2. ZOLOFT [Concomitant]
     Dosage: 50 MG, DAILY
  3. CHERATUSSIN AC [Concomitant]
     Dosage: 10 ML, UNK
     Dates: start: 20100103
  4. SERTRALINE HYDROCHLORIDE [Concomitant]
     Dosage: 50 MG, UNK
     Dates: start: 20100226
  5. SERTRALINE HYDROCHLORIDE [Concomitant]
     Dosage: 50 MG, UNK
     Dates: start: 20100419
  6. YASMIN [Suspect]
     Indication: CONTRACEPTION
     Dosage: UNK
     Route: 048
     Dates: start: 20060101, end: 20090101
  7. AZITHROMYCIN [Concomitant]
     Dosage: 250 MG, UNK
     Dates: start: 20100103
  8. WAL-PHED [Concomitant]
     Dosage: 30 MG, UNK
     Dates: start: 20100103

REACTIONS (10)
  - CHOLECYSTITIS ACUTE [None]
  - EMOTIONAL DISTRESS [None]
  - FEAR OF DEATH [None]
  - NERVOUSNESS [None]
  - ABDOMINAL PAIN [None]
  - DYSPNOEA [None]
  - CHOLECYSTECTOMY [None]
  - CHEST PAIN [None]
  - INJURY [None]
  - DEPRESSION [None]
